FAERS Safety Report 9220113 (Version 1)
Quarter: 2013Q2

REPORT INFORMATION
  Report Type: Spontaneous
  Country: US (occurrence: US)
  Receive Date: 20130409
  Receipt Date: 20130409
  Transmission Date: 20140414
  Serious: Yes (Other)
  Sender: FDA-Public Use
  Company Number: US-PFIZER INC-2013107086

PATIENT
  Age: 81 Year
  Sex: Male
  Weight: 81.18 kg

DRUGS (7)
  1. TOVIAZ [Suspect]
     Indication: HYPERTONIC BLADDER
     Dosage: 8 MG, 1X/DAY
     Dates: start: 20130330, end: 20130402
  2. HUMALOG [Concomitant]
     Indication: DIABETES MELLITUS
     Dosage: UNK, AS NEEDED
  3. LANTUS [Concomitant]
     Indication: DIABETES MELLITUS
     Dosage: 25 IU, 1X/DAY
  4. TERAZOSIN [Concomitant]
     Dosage: 1 MG, 2X/DAY
  5. SIMVASTATIN [Concomitant]
     Dosage: 20 MG, 1X/DAY
  6. LISINOPRIL [Concomitant]
     Dosage: 5 MG, 1X/DAY
  7. MIRALAX [Concomitant]
     Dosage: UNK, 1X/DAY

REACTIONS (2)
  - Renal pain [Recovered/Resolved]
  - Arthritis [Unknown]
